FAERS Safety Report 6738693-6 (Version None)
Quarter: 2010Q2

REPORT INFORMATION
  Report Type: 
  Country: None (occurrence: None)
  Receive Date: 20100524
  Receipt Date: 20100517
  Transmission Date: 20101027
  Serious: Yes (Other)
  Sender: FDA-Public Use
  Company Number: US-PFIZER INC-2010062219

PATIENT
  Sex: Female

DRUGS (1)
  1. XALATAN [Suspect]
     Dosage: UNK
     Route: 047

REACTIONS (4)
  - BURNING SENSATION [None]
  - INTRAOCULAR PRESSURE INCREASED [None]
  - PRURITUS [None]
  - TYPE 2 DIABETES MELLITUS [None]
